FAERS Safety Report 6131383-2 (Version None)
Quarter: 2009Q1

REPORT INFORMATION
  Report Type: 
  Country: None (occurrence: None)
  Receive Date: 20090325
  Receipt Date: 20080522
  Transmission Date: 20090719
  Serious: Yes (Death)
  Sender: FDA-Public Use
  Company Number: US-BRISTOL-MYERS SQUIBB COMPANY-14175871

PATIENT
  Age: 44 Year
  Sex: Male

DRUGS (3)
  1. ERBITUX [Suspect]
     Dosage: TAKEN ON 24MAR,31MAR,07APR,14APR AND 29APR08
     Dates: start: 20080324, end: 20080429
  2. DARBEPOETIN ALFA [Concomitant]
  3. PEGFILGRASTIM [Concomitant]

REACTIONS (1)
  - MALIGNANT NEOPLASM PROGRESSION [None]
